FAERS Safety Report 13779471 (Version 2)
Quarter: 2017Q3

REPORT INFORMATION
  Report Type: Spontaneous
  Country: GB (occurrence: GB)
  Receive Date: 20170721
  Receipt Date: 20170809
  Transmission Date: 20171127
  Serious: Yes (Other)
  Sender: FDA-Public Use
  Company Number: GB-ABBVIE-17P-167-2047562-00

PATIENT
  Sex: Male

DRUGS (8)
  1. EPILIM [Suspect]
     Active Substance: VALPROATE SODIUM
     Indication: PRODUCT USED FOR UNKNOWN INDICATION
     Route: 065
  2. DIAZEPAM. [Suspect]
     Active Substance: DIAZEPAM
     Route: 065
  3. EPILIM [Suspect]
     Active Substance: VALPROATE SODIUM
     Route: 065
     Dates: start: 2016
  4. ZOPICLONE [Suspect]
     Active Substance: ZOPICLONE
     Indication: PRODUCT USED FOR UNKNOWN INDICATION
     Route: 065
  5. DIAZEPAM. [Suspect]
     Active Substance: DIAZEPAM
     Indication: PRODUCT USED FOR UNKNOWN INDICATION
     Route: 065
  6. LANSOPRAZOLE. [Suspect]
     Active Substance: LANSOPRAZOLE
     Indication: PRODUCT USED FOR UNKNOWN INDICATION
     Route: 065
  7. CITALOPRAM [Suspect]
     Active Substance: CITALOPRAM HYDROBROMIDE
     Indication: PRODUCT USED FOR UNKNOWN INDICATION
     Route: 065
  8. RISPERIDONE. [Suspect]
     Active Substance: RISPERIDONE
     Indication: PRODUCT USED FOR UNKNOWN INDICATION
     Route: 065

REACTIONS (36)
  - Confusional state [Unknown]
  - Disturbance in attention [Unknown]
  - Headache [Unknown]
  - Flatulence [Unknown]
  - Fatigue [Unknown]
  - Pain [Unknown]
  - Peripheral swelling [Unknown]
  - Drug interaction [Unknown]
  - Dysphonia [Unknown]
  - Cough [Unknown]
  - Muscular weakness [Unknown]
  - Epilepsy [Unknown]
  - Visual impairment [Unknown]
  - Oedema peripheral [Unknown]
  - Fall [Unknown]
  - Arthralgia [Unknown]
  - Nasal congestion [Unknown]
  - Hypoaesthesia [Unknown]
  - Dyspnoea [Unknown]
  - Alopecia [Unknown]
  - Insomnia [Unknown]
  - Incontinence [Unknown]
  - Constipation [Unknown]
  - Speech disorder [Unknown]
  - Rash [Unknown]
  - Tremor [Unknown]
  - Seizure [Unknown]
  - Feeling cold [Unknown]
  - Delusion [Unknown]
  - Irritability [Unknown]
  - Somnolence [Unknown]
  - Restlessness [Unknown]
  - Syncope [Unknown]
  - Movement disorder [Unknown]
  - Urticaria [Unknown]
  - Decreased appetite [Unknown]
